FAERS Safety Report 17388636 (Version 1)
Quarter: 2020Q1

REPORT INFORMATION
  Report Type: Spontaneous
  Country: US (occurrence: US)
  Receive Date: 20200207
  Receipt Date: 20200207
  Transmission Date: 20200409
  Serious: No
  Sender: FDA-Public Use
  Company Number: US-PFIZER INC-2019407529

PATIENT
  Age: 80 Year
  Sex: Male

DRUGS (2)
  1. RETACRIT [Suspect]
     Active Substance: EPOETIN ALFA-EPBX
     Indication: DEFICIENCY ANAEMIA
     Dosage: 60000 UNK, 2X/DAY [FREQUENCY Q (EVERY) 12 D]
  2. RETACRIT [Suspect]
     Active Substance: EPOETIN ALFA-EPBX
     Indication: MYELODYSPLASTIC SYNDROME
     Dosage: UNK

REACTIONS (3)
  - Fatigue [Recovering/Resolving]
  - Off label use [Unknown]
  - Product use in unapproved indication [Unknown]
